FAERS Safety Report 19626018 (Version 1)
Quarter: 2021Q3

REPORT INFORMATION
  Report Type: Spontaneous
  Country: US (occurrence: US)
  Receive Date: 20210728
  Receipt Date: 20210728
  Transmission Date: 20211014
  Serious: No
  Sender: FDA-Public Use
  Company Number: None

PATIENT
  Age: 84 Year
  Sex: Male
  Weight: 72.9 kg

DRUGS (16)
  1. XARELTO [Concomitant]
     Active Substance: RIVAROXABAN
  2. MULTIVITAMIN [Concomitant]
     Active Substance: VITAMINS
  3. CRESTOR [Concomitant]
     Active Substance: ROSUVASTATIN CALCIUM
  4. VITAMIN C 500MG [Concomitant]
  5. PROSIGHT [Concomitant]
  6. CITALOPRAM [Concomitant]
     Active Substance: CITALOPRAM HYDROBROMIDE
  7. ALLEGRA ALLERGY 180MG [Concomitant]
  8. FLUTICASONE 50MCG/ACT [Concomitant]
  9. CALCIUM 500MG [Concomitant]
  10. HYDROXYZINE [Concomitant]
     Active Substance: HYDROXYZINE HYDROCHLORIDE
  11. METOPROLOL SUCCINATE ER 50MG [Concomitant]
  12. STOOL SOFTENER 100MG [Concomitant]
  13. IMATINIB. [Suspect]
     Active Substance: IMATINIB MESYLATE
     Indication: GASTRIC CANCER
     Route: 048
     Dates: start: 20210512
  14. COENZYME Q10 100MG [Concomitant]
  15. OMEPRAZOLE 40MG [Concomitant]
     Active Substance: OMEPRAZOLE
  16. TAMSULOSIN 0.4MG [Concomitant]
     Active Substance: TAMSULOSIN

REACTIONS (1)
  - Diarrhoea [None]

NARRATIVE: CASE EVENT DATE: 20210728
